FAERS Safety Report 5202937-2 (Version None)
Quarter: 2006Q4

REPORT INFORMATION
  Report Type: 
  Country: None (occurrence: None)
  Receive Date: 20061018
  Receipt Date: 20060509
  Transmission Date: 20070319
  Serious: Yes (Hospitalization, Other)
  Sender: FDA-Public Use
  Company Number: PHEH2006US03996

PATIENT
  Age: 52 Year
  Sex: Female

DRUGS (18)
  1. ZOMETA [Suspect]
     Indication: OSTEOPENIA
     Dosage: 4 MG, ONCE, INTRAVENOUS
     Route: 042
     Dates: start: 20060207, end: 20060207
  2. REMICADE [Suspect]
     Indication: CROHN'S DISEASE
     Dosage: UNK, UNK, UNK
     Dates: start: 20060228
  3. PREDNISONE TAB [Concomitant]
  4. ONDANESTRONR (ONDANSETRON) [Concomitant]
  5. PENTASA [Concomitant]
  6. NEXIUM [Concomitant]
  7. LEXAPRO [Concomitant]
  8. FOLIC ACID [Concomitant]
  9. EVISTA [Concomitant]
  10. LEVSIN (HYOSCYAMINE SULFATE) [Concomitant]
  11. AMBIEN [Concomitant]
  12. SUDAFED 12 HOUR [Concomitant]
  13. CLARITIN [Concomitant]
  14. ZYRTEC [Concomitant]
  15. TUMS (CALCIUM CARBONATE) [Concomitant]
  16. IMODIUM [Concomitant]
  17. CLENASMA (CLENBUTEROL HYDROCHLORIDE) [Concomitant]
  18. CALTRATE (CALCIUM CARBONATE) [Concomitant]

REACTIONS (10)
  - ANGIONEUROTIC OEDEMA [None]
  - ARTHRALGIA [None]
  - BACK PAIN [None]
  - CHILLS [None]
  - DIARRHOEA [None]
  - HYPOTENSION [None]
  - MYALGIA [None]
  - NAUSEA [None]
  - PYREXIA [None]
  - URTICARIA [None]
